FAERS Safety Report 15016718 (Version 1)
Quarter: 2018Q2

REPORT INFORMATION
  Report Type: Spontaneous
  Country: US (occurrence: US)
  Receive Date: 20180523
  Receipt Date: 20180523
  Transmission Date: 20180711
  Serious: No
  Sender: FDA-Public Use
  Company Number: None

PATIENT
  Age: 52 Year
  Sex: Male

DRUGS (1)
  1. LAMIVUDINE. [Suspect]
     Active Substance: LAMIVUDINE

REACTIONS (3)
  - Prescribed overdose [None]
  - Drug resistance [None]
  - Laboratory test abnormal [None]

NARRATIVE: CASE EVENT DATE: 20180523
